FAERS Safety Report 12335360 (Version 5)
Quarter: 2019Q1

REPORT INFORMATION
  Report Type: Spontaneous
  Country: FR (occurrence: FR)
  Receive Date: 20160504
  Receipt Date: 20190110
  Transmission Date: 20190417
  Serious: Yes (Hospitalization, Other)
  Sender: FDA-Public Use
  Company Number: FR-009507513-1605FRA001311

PATIENT
  Age: 66 Year
  Sex: Female
  Weight: 86 kg

DRUGS (6)
  1. KEYTRUDA [Suspect]
     Active Substance: PEMBROLIZUMAB
     Indication: METASTATIC MALIGNANT MELANOMA
     Dosage: 2 MILLIGRAM/KILOGRAM
     Route: 042
     Dates: start: 20151012
  2. CEFIXIME ARROW [Suspect]
     Active Substance: CEFIXIME
     Indication: LUNG DISORDER
     Dosage: UNK
     Route: 048
     Dates: start: 20160322, end: 20160408
  3. OXYCONTIN [Concomitant]
     Active Substance: OXYCODONE HYDROCHLORIDE
     Indication: PAIN
     Dosage: 100 MG, BID
     Route: 048
  4. ALPRAZOLAM. [Concomitant]
     Active Substance: ALPRAZOLAM
     Indication: ANXIETY
     Dosage: 0.5 MG, QD
     Route: 048
  5. KEYTRUDA [Suspect]
     Active Substance: PEMBROLIZUMAB
     Indication: MALIGNANT MELANOMA
     Dosage: 2 MG/KG, Q3W
     Route: 042
     Dates: start: 20150127, end: 20160321
  6. ESOMEPRAZOLE. [Concomitant]
     Active Substance: ESOMEPRAZOLE MAGNESIUM
     Indication: GASTROOESOPHAGEAL REFLUX DISEASE
     Dosage: 20 MG, QD
     Route: 048

REACTIONS (3)
  - Tubulointerstitial nephritis [Unknown]
  - Blood creatinine increased [Recovering/Resolving]
  - Blood urea increased [Recovered/Resolved]

NARRATIVE: CASE EVENT DATE: 201601
